FAERS Safety Report 5882303-7 (Version None)
Quarter: 2008Q3

REPORT INFORMATION
  Report Type: 
  Country: None (occurrence: None)
  Receive Date: 20080912
  Receipt Date: 20080828
  Transmission Date: 20090109
  Serious: No
  Sender: FDA-Public Use
  Company Number: US-ABBOTT-08P-163-0467425-00

PATIENT
  Sex: Female
  Weight: 62.652 kg

DRUGS (8)
  1. HUMIRA [Suspect]
     Indication: RHEUMATOID ARTHRITIS
     Route: 058
     Dates: start: 20070701, end: 20080201
  2. HUMIRA [Suspect]
  3. HUMIRA [Suspect]
     Indication: RHEUMATOID ARTHRITIS
     Route: 058
     Dates: start: 20080201
  4. PREDNISONE TAB [Concomitant]
     Indication: RHEUMATOID ARTHRITIS
     Dosage: 40 MG DAILY
     Route: 048
     Dates: start: 20040101
  5. NAPROXEN SODIUM [Concomitant]
     Indication: RHEUMATOID ARTHRITIS
     Dosage: 1 PILL IN AM, 1 PILL IN PM
     Route: 048
     Dates: start: 20040101
  6. CALCIUM [Concomitant]
     Indication: MINERAL SUPPLEMENTATION
     Dosage: 1000 MG DAILY
     Route: 048
     Dates: start: 20040101
  7. GLUCOSAMINE [Concomitant]
     Indication: SUPPLEMENTATION THERAPY
     Dosage: 750 MG DAILY
     Route: 048
     Dates: start: 20040101
  8. FERROPOLICHONDRUM [Concomitant]
     Indication: SUPPLEMENTATION THERAPY
     Dosage: 750 MG DAILY
     Route: 048
     Dates: start: 20040101

REACTIONS (6)
  - DIZZINESS [None]
  - DRUG INEFFECTIVE [None]
  - HYPOAESTHESIA [None]
  - INJECTION SITE HAEMORRHAGE [None]
  - INJECTION SITE SWELLING [None]
  - PAIN [None]
